FAERS Safety Report 9357971 (Version 1)
Quarter: 2013Q2

REPORT INFORMATION
  Report Type: Spontaneous
  Country: FR (occurrence: FR)
  Receive Date: 20130620
  Receipt Date: 20130620
  Transmission Date: 20140414
  Serious: Yes (Hospitalization)
  Sender: FDA-Public Use
  Company Number: FR-PFIZER INC-2013180075

PATIENT
  Age: 67 Year
  Sex: Female

DRUGS (13)
  1. TRIATEC [Suspect]
     Dosage: 5 MG, DAILY
     Route: 048
     Dates: start: 20130304, end: 20130306
  2. COTRIATEC [Suspect]
     Dosage: 1 DF, DAILY
     Route: 048
     Dates: start: 201205, end: 20130304
  3. XARELTO [Suspect]
     Dosage: 10 MG, DAILY
     Route: 048
     Dates: start: 20130225, end: 20130306
  4. METFORMIN [Concomitant]
     Dosage: UNK
     Dates: start: 201103, end: 20130305
  5. SIMVASTATIN [Concomitant]
     Dosage: UNK
     Dates: start: 201205
  6. KARDEGIC [Concomitant]
     Dosage: UNK
     Dates: start: 20120505
  7. INIPOMP [Concomitant]
     Dosage: UNK
     Dates: start: 201301
  8. SELOKEN [Concomitant]
     Dosage: UNK
     Dates: start: 201205
  9. SEVREDOL [Concomitant]
     Dosage: UNK
     Dates: start: 201301
  10. FUMAFER [Concomitant]
     Dosage: UNK
     Dates: start: 201301
  11. DAFALGAN CODEINE [Concomitant]
     Dosage: UNK
     Dates: start: 201301
  12. LAROXYL [Concomitant]
     Dosage: UNK
     Dates: start: 20130225, end: 20130306
  13. CEBION-CALCIUM MED D3-VITAMIN [Concomitant]
     Dosage: UNK
     Dates: start: 201301

REACTIONS (6)
  - Renal failure acute [Recovering/Resolving]
  - Blood creatinine increased [Recovering/Resolving]
  - Blood urea increased [Recovering/Resolving]
  - Blood potassium increased [Recovering/Resolving]
  - Blood bicarbonate increased [Recovering/Resolving]
  - Anaemia [Unknown]
